FAERS Safety Report 11089982 (Version 1)
Quarter: 2015Q2

REPORT INFORMATION
  Report Type: Spontaneous
  Country: US (occurrence: None)
  Receive Date: 20150501
  Receipt Date: 20150501
  Transmission Date: 20150821
  Serious: Yes (Hospitalization)
  Sender: FDA-Public Use
  Company Number: 2015-JUB00109

PATIENT
  Age: 54 Year
  Sex: Female

DRUGS (1)
  1. ZOLMITRIPTAN (ZOLMITRIPTAN) [Suspect]
     Active Substance: ZOLMITRIPTAN
     Indication: MIGRAINE
     Dosage: 2 TO 3 DOSAGE UNITS

REACTIONS (1)
  - Stress cardiomyopathy [None]
